FAERS Safety Report 23636763 (Version 4)
Quarter: 2025Q1

REPORT INFORMATION
  Report Type: Spontaneous
  Country: US (occurrence: US)
  Receive Date: 20240315
  Receipt Date: 20250102
  Transmission Date: 20250409
  Serious: Yes (Death)
  Sender: PFIZER
  Company Number: US-PFIZER INC-PV202400035728

PATIENT
  Age: 75 Year
  Sex: Female

DRUGS (1)
  1. IBRANCE [Suspect]
     Active Substance: PALBOCICLIB
     Route: 048
     Dates: end: 20240617

REACTIONS (2)
  - Death [Fatal]
  - Cancer pain [Not Recovered/Not Resolved]

NARRATIVE: CASE EVENT DATE: 20240617
